FAERS Safety Report 8972192 (Version 1)
Quarter: 2012Q4

REPORT INFORMATION
  Report Type: 
  Country: US (occurrence: US)
  Receive Date: 20121219
  Receipt Date: 20121219
  Transmission Date: 20130627
  Serious: No
  Sender: FDA-Public Use
  Company Number: US-MYLANLABS-2012S1000345

PATIENT
  Age: 35 Year
  Sex: Female
  Weight: 49.9 kg

DRUGS (3)
  1. LEVETIRACETAM [Suspect]
     Indication: CONVULSION
     Route: 048
     Dates: start: 2009
  2. LAMOTRIGINE [Concomitant]
     Indication: CONVULSION
  3. PHENOBARBITAL [Concomitant]
     Indication: CONVULSION

REACTIONS (3)
  - Immune system disorder [Not Recovered/Not Resolved]
  - Lymphoedema [Not Recovered/Not Resolved]
  - Thrombosis [Not Recovered/Not Resolved]
